FAERS Safety Report 6805578-6 (Version None)
Quarter: 2010Q2

REPORT INFORMATION
  Report Type: 
  Country: None (occurrence: None)
  Receive Date: 20100628
  Receipt Date: 20080108
  Transmission Date: 20101027
  Serious: No
  Sender: FDA-Public Use
  Company Number: US-PFIZER INC-2008002491

PATIENT
  Sex: Female
  Weight: 64.1 kg

DRUGS (2)
  1. GENOTROPIN [Suspect]
     Dates: start: 20080104, end: 20080105
  2. SUMATRIPTAN SUCCINATE (IMITREX) [Concomitant]

REACTIONS (4)
  - EYE PAIN [None]
  - LYMPHADENOPATHY [None]
  - MIGRAINE [None]
  - OEDEMA PERIPHERAL [None]
